FAERS Safety Report 7052089-1 (Version None)
Quarter: 2010Q4

REPORT INFORMATION
  Report Type: 
  Country: None (occurrence: None)
  Receive Date: 20101013
  Receipt Date: 20101006
  Transmission Date: 20110411
  Serious: Yes (Other)
  Sender: FDA-Public Use
  Company Number: 019878

PATIENT
  Age: 64 Year
  Sex: Female

DRUGS (3)
  1. KEPPRA [Suspect]
     Indication: EPILEPSY
     Dosage: (500 MG TID ORAL), (INCREASED UNKNOWN DOSE ORAL), (500 MG TID ORAL)
     Route: 048
     Dates: start: 20060101
  2. LAMICTAL [Concomitant]
  3. RIVOTRIL [Concomitant]

REACTIONS (4)
  - ANTICONVULSANT DRUG LEVEL INCREASED [None]
  - EPILEPSY [None]
  - PARALYSIS [None]
  - SOMNOLENCE [None]
